FAERS Safety Report 6209378-X (Version None)
Quarter: 2009Q2

REPORT INFORMATION
  Report Type: 
  Country: None (occurrence: None)
  Receive Date: 20090529
  Receipt Date: 20090521
  Transmission Date: 20091009
  Serious: Yes (Hospitalization)
  Sender: FDA-Public Use
  Company Number: PHHY2009JP11395

PATIENT
  Sex: Male
  Weight: 59 kg

DRUGS (2)
  1. DIOVAN T30230+TAB+HY [Suspect]
     Dosage: 80 MG, QD
     Route: 048
     Dates: start: 20071210, end: 20080204
  2. MICARDIS [Concomitant]
     Indication: HYPERTENSION
     Dosage: 40 MG
     Route: 048
     Dates: start: 20050112, end: 20071209

REACTIONS (1)
  - SUBDURAL HAEMATOMA [None]
